FAERS Safety Report 10534161 (Version 1)
Quarter: 2014Q4

REPORT INFORMATION
  Report Type: Spontaneous
  Country: US (occurrence: None)
  Receive Date: 20141020
  Receipt Date: 20141020
  Transmission Date: 20150529
  Serious: Yes (Hospitalization)
  Sender: FDA-Public Use
  Company Number: CIO14054868

PATIENT
  Age: 50 Year
  Sex: Female

DRUGS (3)
  1. ALL OTHER THERAPEUTICS PRODUCTS [Concomitant]
  2. MELATONIN (MELATONIN) [Concomitant]
     Active Substance: MELATONIN
  3. ZZZQUIL NIGHTTIME SLEEP-AID [Suspect]
     Active Substance: DIPHENHYDRAMINE HYDROCHLORIDE
     Dosage: 2 NIGHTS IN A ROW
     Route: 048
     Dates: start: 201407

REACTIONS (6)
  - Labelled drug-drug interaction medication error [None]
  - Stupor [None]
  - Hypoglycaemia [None]
  - Dehydration [None]
  - Altered state of consciousness [None]
  - Restlessness [None]

NARRATIVE: CASE EVENT DATE: 20140801
